FAERS Safety Report 9380887 (Version 1)
Quarter: 2013Q3

REPORT INFORMATION
  Report Type: Report from Study
  Country: US (occurrence: US)
  Receive Date: 20130703
  Receipt Date: 20130703
  Transmission Date: 20140515
  Serious: Yes (Other)
  Sender: FDA-Public Use
  Company Number: US-PFIZER INC-HQ9704516APR2001

PATIENT
  Age: 68 Year
  Sex: Male
  Weight: 108 kg

DRUGS (12)
  1. TEMSIROLIMUS [Suspect]
     Indication: RENAL CELL CARCINOMA
     Dosage: 250 MG, WEEKLY
     Route: 042
     Dates: start: 20001004
  2. ALLOPURINOL [Concomitant]
     Dosage: UNK
     Route: 048
     Dates: start: 2000
  3. MYLANTA [Concomitant]
     Dosage: UNK
     Route: 048
     Dates: start: 199810
  4. COREG [Concomitant]
     Dosage: UNK
     Route: 048
     Dates: start: 199904
  5. COLACE [Concomitant]
     Dosage: UNK
     Route: 048
     Dates: start: 199807
  6. VASOTEC [Concomitant]
     Dosage: UNK
     Route: 048
     Dates: start: 199810
  7. LASIX [Concomitant]
     Dosage: UNK
     Route: 048
     Dates: start: 199904
  8. ISORBID [Concomitant]
     Dosage: UNK
     Route: 048
     Dates: start: 199810
  9. OXYCONTIN [Concomitant]
     Dosage: UNK
     Route: 048
     Dates: start: 199807
  10. POTASSIUM [Concomitant]
     Dosage: UNK
     Route: 048
     Dates: start: 199904
  11. SENOKOT [Concomitant]
     Dosage: UNK
     Route: 048
     Dates: start: 199807
  12. WARFARIN SODIUM [Concomitant]
     Dosage: UNK
     Route: 048
     Dates: start: 199810

REACTIONS (1)
  - Angioedema [Recovered/Resolved]
